FAERS Safety Report 17587340 (Version 1)
Quarter: 2020Q1

REPORT INFORMATION
  Report Type: Spontaneous
  Country: DE (occurrence: DE)
  Receive Date: 20200326
  Receipt Date: 20200326
  Transmission Date: 20200409
  Serious: Yes (Other)
  Sender: FDA-Public Use
  Company Number: DE-MYLANLABS-2020M1031915

PATIENT
  Age: 72 Year
  Sex: Female

DRUGS (2)
  1. ATORVASTATIN [Concomitant]
     Active Substance: ATORVASTATIN
     Dosage: IN THE EVENING
     Dates: start: 2014
  2. BISOPROLOL [Suspect]
     Active Substance: BISOPROLOL
     Indication: PRODUCT USED FOR UNKNOWN INDICATION
     Dosage: IN THE MORNING
     Dates: start: 20190328

REACTIONS (12)
  - Oral pain [Recovering/Resolving]
  - Lacrimation increased [Unknown]
  - Nausea [Unknown]
  - Swollen tongue [Recovering/Resolving]
  - Visual impairment [Unknown]
  - Swelling face [Recovering/Resolving]
  - Eye pain [Unknown]
  - Ear pain [Unknown]
  - Dizziness [Unknown]
  - Pain [Recovering/Resolving]
  - Abdominal pain upper [Unknown]
  - Headache [Unknown]
